FAERS Safety Report 19659332 (Version 2)
Quarter: 2021Q4

REPORT INFORMATION
  Report Type: Report from Study
  Country: US (occurrence: US)
  Receive Date: 20210804
  Receipt Date: 20211006
  Transmission Date: 20220303
  Serious: Yes (Hospitalization, Other)
  Sender: FDA-Public Use
  Company Number: NVSC2021US167555

PATIENT
  Age: 73 Year
  Sex: Female
  Weight: 65 kg

DRUGS (3)
  1. ZARXIO [Suspect]
     Active Substance: FILGRASTIM-SNDZ
     Indication: Neoplasm malignant
     Dosage: 480 MCG/0.8 MLX 2 DAYS/WK (X2 DOSES DAILY)
     Route: 058
     Dates: start: 20201123
  2. PACLITAXEL [Concomitant]
     Active Substance: PACLITAXEL
     Indication: Neoplasm malignant
     Dosage: 64 MG/M2 QWK
     Route: 042
     Dates: start: 20200204
  3. CARBOPLATIN [Concomitant]
     Active Substance: CARBOPLATIN
     Indication: Neoplasm malignant
     Dosage: (DOSE FOR AUC 2 QWK)
     Route: 042
     Dates: start: 20200204

REACTIONS (6)
  - Fall [Unknown]
  - Mobility decreased [Unknown]
  - COVID-19 pneumonia [Unknown]
  - Hypoxia [Unknown]
  - Hip fracture [Recovered/Resolved]
  - Product use in unapproved indication [Unknown]

NARRATIVE: CASE EVENT DATE: 20210123
